FAERS Safety Report 5060053-7 (Version None)
Quarter: 2006Q3

REPORT INFORMATION
  Report Type: 
  Country: None (occurrence: None)
  Receive Date: 20060718
  Receipt Date: 20060705
  Transmission Date: 20061208
  Serious: No
  Sender: FDA-Public Use
  Company Number: 2006-71444

PATIENT
  Sex: Male

DRUGS (1)
  1. ENDOSOL EXTRA [Suspect]
     Indication: EYE IRRIGATION
     Dosage: 500ML, ONCE, INTRAOCULAR 031
     Route: 031
     Dates: start: 20060201

REACTIONS (1)
  - INJURY [None]
